FAERS Safety Report 9621274 (Version 5)
Quarter: 2014Q1

REPORT INFORMATION
  Report Type: Spontaneous
  Country: JP (occurrence: JP)
  Receive Date: 20131015
  Receipt Date: 20140211
  Transmission Date: 20141002
  Serious: No
  Sender: FDA-Public Use
  Company Number: JP-JNJFOC-20130707953

PATIENT
  Age: 83 Year
  Sex: Female

DRUGS (4)
  1. TRAMCET [Suspect]
     Indication: PRODUCT USED FOR UNKNOWN INDICATION
     Dosage: 1 PER 1 DAY
     Route: 048
     Dates: start: 20130619, end: 20130705
  2. TRAMCET [Suspect]
     Indication: PRODUCT USED FOR UNKNOWN INDICATION
     Dosage: 1 PER 1 DAY
     Route: 048
     Dates: start: 20130614, end: 20130618
  3. METHOTREXATE [Concomitant]
     Indication: RHEUMATIC DISORDER
     Route: 065
  4. PRIMPERAN [Concomitant]
     Indication: PROPHYLAXIS OF NAUSEA AND VOMITING
     Route: 048
     Dates: start: 20130614

REACTIONS (3)
  - Nausea [Recovered/Resolved]
  - Inadequate analgesia [Unknown]
  - Oral discomfort [Recovered/Resolved]
